FAERS Safety Report 9498542 (Version 1)
Quarter: 2013Q3

REPORT INFORMATION
  Report Type: Spontaneous
  Country: US (occurrence: US)
  Receive Date: 20130904
  Receipt Date: 20130904
  Transmission Date: 20140515
  Serious: No
  Sender: FDA-Public Use
  Company Number: US-PFIZER INC-2013251048

PATIENT
  Sex: Female

DRUGS (1)
  1. ELLENCE [Suspect]
     Dosage: UNK
     Dates: start: 20130829

REACTIONS (3)
  - Occupational exposure to product [Unknown]
  - Throat irritation [Unknown]
  - Headache [Unknown]
